FAERS Safety Report 24638011 (Version 3)
Quarter: 2025Q1

REPORT INFORMATION
  Report Type: Spontaneous
  Country: US (occurrence: US)
  Receive Date: 20241119
  Receipt Date: 20250128
  Transmission Date: 20250409
  Serious: No
  Sender: PFIZER
  Company Number: US-PFIZER INC-202400303982

PATIENT
  Age: 66 Year
  Sex: Female
  Weight: 96.145 kg

DRUGS (3)
  1. PAXLOVID [Suspect]
     Active Substance: NIRMATRELVIR\RITONAVIR
     Indication: COVID-19 treatment
     Dosage: [NIRMATRELVIR 300 MG]/[RITONAVIR 100 MG]; 2X/DAY
     Route: 048
     Dates: start: 20241106, end: 20241111
  2. VICKS DAYQUIL [Concomitant]
     Active Substance: DEXTROMETHORPHAN HYDROBROMIDE\GUAIFENESIN
     Indication: Upper respiratory tract congestion
     Dosage: 1-2 TABLETS EVERY 12 HOURS
  3. ALEVE [Concomitant]
     Active Substance: NAPROXEN SODIUM
     Indication: Pyrexia
     Dosage: 1-2 TABLETS EVERY 12 HOURS

REACTIONS (4)
  - Therapeutic product effect incomplete [Not Recovered/Not Resolved]
  - Sinusitis [Recovered/Resolved]
  - Sinus congestion [Recovered/Resolved]
  - Muscle fatigue [Not Recovered/Not Resolved]

NARRATIVE: CASE EVENT DATE: 20241101
